FAERS Safety Report 7967266-2 (Version None)
Quarter: 2011Q4

REPORT INFORMATION
  Report Type: 
  Country: None (occurrence: None)
  Receive Date: 20111206
  Receipt Date: 20111121
  Transmission Date: 20120403
  Serious: Yes (Other)
  Sender: FDA-Public Use
  Company Number: US-2011-10857

PATIENT
  Age: 43 Year
  Sex: Female

DRUGS (9)
  1. ZETIA [Concomitant]
  2. DIOVAN [Concomitant]
  3. OSTEO-BIOFLEX [Concomitant]
  4. VITAMIN D (COLECALCIFEROL) [Concomitant]
  5. OPC-41061 (TOLVAPTAN) TABLET, 30MG MILLIGRAM(S) [Suspect]
     Indication: RENAL DISORDER
     Dosage: 90 MG MILLIGRAM(S), DAILY DOSE,ORAL
     Route: 048
     Dates: start: 20110810, end: 20111121
  6. MULTIVITAMIN [Concomitant]
  7. FLAXSEED OIL (FLAXSEED OIL) [Concomitant]
  8. TUMS (CALCIUM CARBONATE, MAGNESIUM CARBONATE, MAGNESIUM TRISILICATE) [Concomitant]
  9. VERELAN [Concomitant]

REACTIONS (2)
  - ASPARTATE AMINOTRANSFERASE INCREASED [None]
  - ALANINE AMINOTRANSFERASE INCREASED [None]
